FAERS Safety Report 4414223-9 (Version None)
Quarter: 2004Q3

REPORT INFORMATION
  Report Type: 
  Country: None (occurrence: None)
  Receive Date: 20040729
  Receipt Date: 20040726
  Transmission Date: 20050211
  Serious: Yes (Death)
  Sender: FDA-Public Use
  Company Number: TPG0T01258534

PATIENT
  Age: 83 Year
  Sex: Male

DRUGS (1)
  1. TRENANTONE (LEUPRORELIN) (INJECTION) [Suspect]
     Indication: PROSTATE CANCER
     Dosage: 11.25 MG (11.25 MG, 1 IN 84 D) SUBCUTANEOUS
     Route: 058
     Dates: start: 19980101, end: 19980101

REACTIONS (3)
  - AZOTAEMIA [None]
  - MALIGNANT NEOPLASM PROGRESSION [None]
  - METASTASIS [None]
